FAERS Safety Report 4772817-5 (Version None)
Quarter: 2005Q3

REPORT INFORMATION
  Report Type: 
  Country: None (occurrence: None)
  Receive Date: 20050919
  Receipt Date: 20050909
  Transmission Date: 20060218
  Serious: Yes (Other)
  Sender: FDA-Public Use
  Company Number: GB-MERCK-0509USA01091

PATIENT
  Sex: Male

DRUGS (8)
  1. SUSTIVA [Suspect]
     Indication: HIV INFECTION
     Route: 048
     Dates: start: 19990701, end: 20040501
  2. CRIXIVAN [Suspect]
     Indication: HIV INFECTION
     Route: 048
     Dates: start: 19980101, end: 19990701
  3. ZERIT [Suspect]
     Indication: HIV INFECTION
     Route: 048
     Dates: start: 19980101, end: 20030201
  4. VIDEX [Suspect]
     Indication: HIV INFECTION
     Route: 048
     Dates: start: 19980101, end: 20040501
  5. ATAZANAVIR [Concomitant]
     Route: 065
     Dates: start: 20040501
  6. RITONAVIR [Concomitant]
     Route: 065
     Dates: start: 20040501
  7. EMTRICITABINE [Concomitant]
     Route: 065
     Dates: start: 20040501
  8. TENOFOVIR [Suspect]
     Indication: HIV INFECTION
     Route: 065
     Dates: start: 20030201

REACTIONS (4)
  - ABNORMAL DREAMS [None]
  - HYPERLIPIDAEMIA [None]
  - LIPOATROPHY [None]
  - LIPODYSTROPHY ACQUIRED [None]
